FAERS Safety Report 9726598 (Version 5)
Quarter: 2014Q4

REPORT INFORMATION
  Report Type: Report from Study
  Country: EG (occurrence: EG)
  Receive Date: 20131203
  Receipt Date: 20141020
  Transmission Date: 20150529
  Serious: Yes (Hospitalization, Other)
  Sender: FDA-Public Use
  Company Number: EG-GLAXOSMITHKLINE-B0948940A

PATIENT
  Age: 47 Year
  Sex: Female

DRUGS (14)
  1. ONDANSETRON HYDROCHLORIDE. [Suspect]
     Active Substance: ONDANSETRON HYDROCHLORIDE
     Indication: B-CELL LYMPHOMA
     Dosage: 750 MG, CYC
     Route: 042
     Dates: start: 20130527
  2. ZOFRAN [Concomitant]
     Active Substance: ONDANSETRON HYDROCHLORIDE
     Indication: PREMEDICATION
     Dosage: 8 MG, CYC
     Route: 042
     Dates: start: 20130527
  3. DEXAMETHASONE. [Suspect]
     Active Substance: DEXAMETHASONE
     Dosage: UNK, CYC
     Route: 042
     Dates: start: 20130527
  4. ZANTAC [Suspect]
     Active Substance: RANITIDINE HYDROCHLORIDE
     Dosage: UNK, CYC
     Route: 042
     Dates: start: 20130527
  5. LASIX [Concomitant]
     Active Substance: FUROSEMIDE
     Indication: HYPERTENSIVE ENCEPHALOPATHY
     Dosage: UNK
     Route: 042
     Dates: start: 20131206
  6. PREDNISONE. [Suspect]
     Active Substance: PREDNISONE
     Dosage: UNK, CYC
     Route: 048
     Dates: start: 20130527
  7. PHENIRAMINE [Suspect]
     Active Substance: PHENIRAMINE
     Dosage: UNK, CYC
     Route: 042
     Dates: start: 20130527
  8. RITUXIMAB [Suspect]
     Active Substance: RITUXIMAB
     Dosage: UNK, CYC
     Route: 042
     Dates: start: 20130527
  9. MERONEM [Concomitant]
     Active Substance: MEROPENEM
     Indication: HYPERTENSIVE ENCEPHALOPATHY
     Dosage: 500 MG, TID
     Route: 042
     Dates: start: 20131206
  10. AVIL [Concomitant]
     Active Substance: PHENIRAMINE
     Indication: PREMEDICATION
     Dosage: UNK, CYC
     Route: 042
     Dates: start: 20130527
  11. DOXORUBICIN HYDROCHLORIDE. [Suspect]
     Active Substance: DOXORUBICIN HYDROCHLORIDE
     Dosage: UNK, CYC
     Route: 042
     Dates: start: 20130527
  12. VINCRISTINE SULFATE. [Suspect]
     Active Substance: VINCRISTINE SULFATE
     Dosage: UNK, CYC
     Route: 042
     Dates: start: 20130527
  13. CYCLOPHOSPHAMIDE. [Suspect]
     Active Substance: CYCLOPHOSPHAMIDE
     Dosage: UNK, CYC
     Route: 042
     Dates: start: 20130527
  14. DIFLUCAN [Concomitant]
     Active Substance: FLUCONAZOLE
     Indication: HYPERTENSIVE ENCEPHALOPATHY
     Dosage: UNK, QD
     Route: 042
     Dates: start: 20131206

REACTIONS (3)
  - Sepsis [Recovered/Resolved]
  - Anaemia [Recovered/Resolved]
  - Febrile neutropenia [Recovered/Resolved]

NARRATIVE: CASE EVENT DATE: 20130614
